FAERS Safety Report 4852758-5 (Version None)
Quarter: 2005Q4

REPORT INFORMATION
  Report Type: 
  Country: None (occurrence: None)
  Receive Date: 20051125
  Receipt Date: 20050425
  Transmission Date: 20060501
  Serious: Yes (Hospitalization, Other)
  Sender: FDA-Public Use
  Company Number: HQWYE459902MAY05

PATIENT
  Sex: 0

DRUGS (1)
  1. ZOSYN [Suspect]
     Indication: PNEUMONIA
     Dosage: 4.5 G 1X PER 6 HR, INTRAVENOUS; SEE IMAGE
     Route: 042

REACTIONS (1)
  - HEPATIC ENZYME INCREASED [None]
